FAERS Safety Report 21763635 (Version 6)
Quarter: 2025Q1

REPORT INFORMATION
  Report Type: Spontaneous
  Country: PK (occurrence: PK)
  Receive Date: 20221222
  Receipt Date: 20250313
  Transmission Date: 20250408
  Serious: Yes (Other)
  Sender: AMGEN
  Company Number: PK-PFIZER INC-202101419562

PATIENT
  Age: 40 Year
  Sex: Male

DRUGS (4)
  1. ENBREL [Suspect]
     Active Substance: ETANERCEPT
     Indication: Rheumatoid arthritis
     Dosage: 50 MG, WEEKLY
     Route: 058
     Dates: start: 202102
  2. ENBREL [Suspect]
     Active Substance: ETANERCEPT
     Indication: Spondylitis
     Route: 058
     Dates: start: 20211022
  3. ENBREL [Suspect]
     Active Substance: ETANERCEPT
     Route: 058
  4. ENBREL [Suspect]
     Active Substance: ETANERCEPT
     Dosage: 50 MG, 2 WEEKLY
     Route: 058
     Dates: start: 20230211

REACTIONS (8)
  - Ankylosing spondylitis [Unknown]
  - Eosinophilia myalgia syndrome [Unknown]
  - Hyperbilirubinaemia [Unknown]
  - Joint swelling [Unknown]
  - Arthropathy [Unknown]
  - Back pain [Unknown]
  - Tenderness [Unknown]
  - Off label use [Unknown]

NARRATIVE: CASE EVENT DATE: 20211022
